FAERS Safety Report 16912674 (Version 1)
Quarter: 2019Q4

REPORT INFORMATION
  Report Type: Report from Study
  Country: JP (occurrence: JP)
  Receive Date: 20191014
  Receipt Date: 20191014
  Transmission Date: 20200122
  Serious: Yes (Other)
  Sender: FDA-Public Use
  Company Number: JP-ROCHE-2438671

PATIENT

DRUGS (1)
  1. RITUXIMAB. [Suspect]
     Active Substance: RITUXIMAB
     Indication: PROPHYLAXIS AGAINST TRANSPLANT REJECTION
     Route: 065

REACTIONS (5)
  - Cytomegalovirus infection [Unknown]
  - Polyomavirus-associated nephropathy [Unknown]
  - Cytomegalovirus test positive [Unknown]
  - Pyrexia [Unknown]
  - Gastrointestinal disorder [Unknown]
